FAERS Safety Report 9831105 (Version 1)
Quarter: 2014Q1

REPORT INFORMATION
  Report Type: Spontaneous
  Country: US (occurrence: US)
  Receive Date: 20140121
  Receipt Date: 20140121
  Transmission Date: 20141002
  Serious: Yes (Hospitalization)
  Sender: FDA-Public Use
  Company Number: US-ROCHE-1333799

PATIENT
  Age: 18 Year
  Sex: Female

DRUGS (10)
  1. XOLAIR [Suspect]
     Indication: ASTHMA
     Route: 065
  2. SINGULAIR [Concomitant]
  3. LYRICA [Concomitant]
  4. SYNTHROID [Concomitant]
  5. AMOXICILLIN [Concomitant]
  6. AZITHROMYCIN [Concomitant]
  7. ZANTAC [Concomitant]
  8. DOXEPIN [Concomitant]
  9. ZYRTEC [Concomitant]
  10. TOPAMAX [Concomitant]

REACTIONS (2)
  - Asthma [Unknown]
  - Cholecystitis infective [Unknown]
